FAERS Safety Report 6689447-0 (Version None)
Quarter: 2010Q2

REPORT INFORMATION
  Report Type: 
  Country: None (occurrence: None)
  Receive Date: 20100421
  Receipt Date: 20100413
  Transmission Date: 20101027
  Serious: Yes (Hospitalization)
  Sender: FDA-Public Use
  Company Number: US-BIOGENIDEC-2009BI008055

PATIENT
  Age: 51 Year
  Sex: Female

DRUGS (3)
  1. AVONEX [Suspect]
     Indication: MULTIPLE SCLEROSIS
     Route: 030
     Dates: start: 19991126, end: 20030801
  2. AVONEX [Suspect]
     Route: 030
     Dates: start: 20030801
  3. MAINTENANCE MEDICATIONS(NOS) [Concomitant]
     Indication: ASTHMA

REACTIONS (5)
  - ASTHMA [None]
  - BRONCHITIS [None]
  - OBSTRUCTIVE AIRWAYS DISORDER [None]
  - SINUSITIS [None]
  - UPPER RESPIRATORY TRACT INFECTION [None]
